FAERS Safety Report 23241772 (Version 1)
Quarter: 2023Q4

REPORT INFORMATION
  Report Type: Spontaneous
  Country: US (occurrence: US)
  Receive Date: 20231129
  Receipt Date: 20231129
  Transmission Date: 20240109
  Serious: Yes (Hospitalization)
  Sender: FDA-Public Use
  Company Number: US-MYLANLABS-2023M1124093

PATIENT
  Age: 57 Year
  Sex: Male

DRUGS (1)
  1. INSULIN GLARGINE [Suspect]
     Active Substance: INSULIN GLARGINE
     Indication: Type 2 diabetes mellitus
     Dosage: 100 INTERNATIONAL UNIT, INJECTED 8 VIALS OF 100 UNITS WITH A TOTAL DOSE OF 800 UNITS
     Route: 065

REACTIONS (4)
  - Intentional overdose [Recovering/Resolving]
  - Hypoglycaemia [Recovering/Resolving]
  - Therapeutic product effect prolonged [Recovering/Resolving]
  - Suicide attempt [Recovering/Resolving]
